FAERS Safety Report 5363542-0 (Version None)
Quarter: 2007Q2

REPORT INFORMATION
  Report Type: 
  Country: None (occurrence: None)
  Receive Date: 20070618
  Receipt Date: 20070618
  Transmission Date: 20071010
  Serious: Yes (Other)
  Sender: FDA-Public Use
  Company Number: None

PATIENT
  Age: 48 Year
  Sex: Male
  Weight: 61 kg

DRUGS (2)
  1. INTRALIPID 20% [Suspect]
     Indication: PARENTERAL NUTRITION
     Dosage: 250ML DAILY IV DRIP
     Route: 041
     Dates: start: 20070608, end: 20070611
  2. INTRALIPID 20% [Suspect]
     Indication: SMALL INTESTINAL OBSTRUCTION
     Dosage: 250ML DAILY IV DRIP
     Route: 041
     Dates: start: 20070608, end: 20070611

REACTIONS (5)
  - CELLULITIS [None]
  - PHLEBITIS [None]
  - PYREXIA [None]
  - THERAPEUTIC PRODUCT CONTAMINATION [None]
  - WHITE BLOOD CELL COUNT INCREASED [None]
